FAERS Safety Report 9062872 (Version 1)
Quarter: 2013Q1

REPORT INFORMATION
  Report Type: Spontaneous
  Country: US (occurrence: US)
  Receive Date: 20130131
  Receipt Date: 20130131
  Transmission Date: 20140127
  Serious: No
  Sender: FDA-Public Use
  Company Number: US-ABBOTT-12P-163-1002848-00

PATIENT
  Sex: Female
  Weight: 113.5 kg

DRUGS (13)
  1. HUMIRA [Suspect]
     Indication: PSORIASIS
     Route: 058
     Dates: start: 201207, end: 20121005
  2. TACLONEX [Concomitant]
     Indication: PSORIASIS
  3. TESTOSTERONE [Concomitant]
     Indication: BLOOD TESTOSTERONE DECREASED
  4. METFORMIN [Concomitant]
     Indication: DIABETES MELLITUS
  5. BENICAR [Concomitant]
     Indication: HYPERTENSION
  6. HCTZ/TRIAMTERENE [Concomitant]
     Indication: HYPERTENSION
  7. SIMVASTATIN [Concomitant]
     Indication: HYPERLIPIDAEMIA
  8. LANTUS [Concomitant]
     Indication: DIABETES MELLITUS
  9. HUMALOG [Concomitant]
     Indication: DIABETES MELLITUS
  10. ASPIRIN [Concomitant]
     Indication: PROPHYLAXIS
  11. MULTIPLE VITAMINS [Concomitant]
     Indication: VITAMIN SUPPLEMENTATION
  12. ENBREL [Concomitant]
     Indication: PRODUCT USED FOR UNKNOWN INDICATION
  13. TOPOMAX [Concomitant]

REACTIONS (1)
  - Drug ineffective [Recovered/Resolved]
